FAERS Safety Report 5637020-5 (Version None)
Quarter: 2008Q1

REPORT INFORMATION
  Report Type: 
  Country: None (occurrence: None)
  Receive Date: 20080225
  Receipt Date: 20070523
  Transmission Date: 20080703
  Serious: No
  Sender: FDA-Public Use
  Company Number: US-BRISTOL-MYERS SQUIBB COMPANY-13790423

PATIENT
  Sex: Female

DRUGS (1)
  1. METFORMIN HCL [Suspect]
     Route: 048
     Dates: start: 20060101, end: 20060101

REACTIONS (2)
  - DYSPHAGIA [None]
  - PHARYNGOLARYNGEAL PAIN [None]
